FAERS Safety Report 16173524 (Version 1)
Quarter: 2019Q2

REPORT INFORMATION
  Report Type: Spontaneous
  Country: US (occurrence: US)
  Receive Date: 20190408
  Receipt Date: 20190408
  Transmission Date: 20190711
  Serious: Yes (Life-Threatening, Hospitalization)
  Sender: FDA-Public Use
  Company Number: None

PATIENT
  Age: 15 Year
  Sex: Female
  Weight: 41.85 kg

DRUGS (4)
  1. EFFEXOR [Suspect]
     Active Substance: VENLAFAXINE HYDROCHLORIDE
     Indication: ANXIETY
     Dosage: ?          QUANTITY:1 CAPSULE(S);?
     Route: 048
     Dates: start: 20190311, end: 20190406
  2. MULTIVITAMINM [Concomitant]
  3. PROBIOTICS [Concomitant]
     Active Substance: PROBIOTICS NOS
  4. DOXYXYCLINE [Concomitant]

REACTIONS (5)
  - Feeling of despair [None]
  - Emotional distress [None]
  - Intentional self-injury [None]
  - Suicidal behaviour [None]
  - Hallucination, auditory [None]

NARRATIVE: CASE EVENT DATE: 20190406
